FAERS Safety Report 8532735 (Version 4)
Quarter: 2012Q4

REPORT INFORMATION
  Report Type: 
  Country: JP (occurrence: JP)
  Receive Date: 20120426
  Receipt Date: 20121112
  Transmission Date: 20130627
  Serious: Yes (Other)
  Sender: FDA-Public Use
  Company Number: JP-PFIZER INC-2012076317

PATIENT
  Age: 69 Year
  Sex: Female
  Weight: 35 kg

DRUGS (14)
  1. CELECOX [Suspect]
     Indication: RHEUMATOID ARTHRITIS
     Dosage: 100 mg, 2x/day
     Route: 045
     Dates: start: 20111214, end: 20120221
  2. CELECOX [Suspect]
     Indication: PAIN OF LOWER EXTREMITIES
  3. LYRICA [Suspect]
     Indication: NEUROPATHIC PAIN
     Dosage: 75 mg, 1x/day
     Route: 048
     Dates: start: 20111226, end: 20120112
  4. LYRICA [Suspect]
     Indication: PAIN OF LOWER EXTREMITIES
     Dosage: 75 mg, 2x/day
     Route: 048
     Dates: start: 20120112, end: 20120213
  5. MYSLEE [Suspect]
     Indication: INSOMNIA
     Dosage: 5 mg, 1x/day
     Route: 045
     Dates: start: 20111212, end: 20120220
  6. EXCEGRAN [Concomitant]
     Indication: EPILEPSY
     Dosage: 75 mg, 2x/day
     Route: 045
     Dates: start: 20100625
  7. FAMOTIDINE [Concomitant]
     Indication: GASTRITIS
     Dosage: 20 mg, 2x/day
     Route: 045
     Dates: start: 20110725
  8. ASPARA K [Concomitant]
     Indication: HYPOKALAEMIA
     Dosage: 300 mg, 2x/day
     Route: 045
     Dates: start: 20110909, end: 20120126
  9. ASPARA K [Concomitant]
     Dosage: 150 mg, 2x/day
     Route: 045
     Dates: start: 20120127
  10. HOKUNALIN [Concomitant]
     Dosage: UNK
     Route: 062
  11. SIGMART [Concomitant]
     Dosage: 15 mg/day
     Route: 048
  12. MUCODYNE [Concomitant]
     Dosage: 1.5 g/day
     Route: 048
  13. RIKKUNSHITO [Concomitant]
     Dosage: 7.5 g/day
     Route: 048
  14. RISUMIC [Concomitant]
     Dosage: 20 mg/day
     Route: 048

REACTIONS (2)
  - Drug eruption [Recovered/Resolved]
  - Urinary tract infection [Not Recovered/Not Resolved]
